FAERS Safety Report 6467255-3 (Version None)
Quarter: 2009Q4

REPORT INFORMATION
  Report Type: 
  Country: None (occurrence: None)
  Receive Date: 20091130
  Receipt Date: 20091112
  Transmission Date: 20100525
  Serious: Yes (Death)
  Sender: FDA-Public Use
  Company Number: KV200900713

PATIENT
  Age: 78 Year
  Sex: Male
  Weight: 77.3 kg

DRUGS (16)
  1. MORPHINE SULFATE [Suspect]
     Indication: PAIN
     Dosage: 15 MG, 1-2 TABS EVERY 2-4 HOURS PRN, ORAL
     Route: 048
     Dates: start: 20080321
  2. CELEBREX [Concomitant]
  3. FENTANYL-100 [Concomitant]
  4. PERCOCET [Concomitant]
  5. LUNESTA [Concomitant]
  6. MIRTAZAPINE [Concomitant]
  7. NEXIUM /00446701/ (ESOMEPRAZOLA MAGNESIUM) [Concomitant]
  8. OXYCODONE HCL ER (OXYCODONE HYDROCHLORIDE) [Concomitant]
  9. LEXAPRO [Concomitant]
  10. VIAGRA [Concomitant]
  11. CEPHALEXIN /00145501/ (CEFALEXIN) [Concomitant]
  12. ENTEX CAP [Concomitant]
  13. ALBUTEROL /00139501/ (SALBUTAMOL) [Concomitant]
  14. TAMIFLU [Concomitant]
  15. EFUDEX [Concomitant]
  16. DURAGESIC-100 [Concomitant]

REACTIONS (4)
  - CARDIO-RESPIRATORY ARREST [None]
  - HAEMATEMESIS [None]
  - MALIGNANT MELANOMA STAGE IV [None]
  - UNRESPONSIVE TO STIMULI [None]
